FAERS Safety Report 20963688 (Version 1)
Quarter: 2022Q2

REPORT INFORMATION
  Report Type: Spontaneous
  Country: US (occurrence: US)
  Receive Date: 20220615
  Receipt Date: 20220615
  Transmission Date: 20220721
  Serious: No
  Sender: FDA-Public Use
  Company Number: US-AMGEN-USASP2022096813

PATIENT
  Age: 68 Year
  Sex: Male

DRUGS (12)
  1. REPATHA [Suspect]
     Active Substance: EVOLOCUMAB
     Indication: Hypercholesterolaemia
     Dosage: 140 MILLIGRAM, Q2WK
     Route: 058
     Dates: start: 20220515
  2. FISH OIL [Concomitant]
     Active Substance: FISH OIL
  3. CELEBREX [Concomitant]
     Active Substance: CELECOXIB
  4. LISINOPRIL [Concomitant]
     Active Substance: LISINOPRIL
  5. ATENOLOL [Concomitant]
     Active Substance: ATENOLOL
  6. ZETIA [Concomitant]
     Active Substance: EZETIMIBE
  7. CIALIS [Concomitant]
     Active Substance: TADALAFIL
  8. VITAMINS [Concomitant]
     Active Substance: VITAMINS
  9. PROBIOTICS NOS [Concomitant]
     Active Substance: PROBIOTICS NOS
  10. VITAMIN D [Concomitant]
     Active Substance: VITAMIN D NOS
  11. CHONDROITIN COMPLEX [Concomitant]
  12. GLUCOSAMINE [Concomitant]
     Active Substance: GLUCOSAMINE

REACTIONS (2)
  - Fatigue [Not Recovered/Not Resolved]
  - Cough [Unknown]

NARRATIVE: CASE EVENT DATE: 20220522
